FAERS Safety Report 7377645-2 (Version None)
Quarter: 2011Q1

REPORT INFORMATION
  Report Type: 
  Country: None (occurrence: None)
  Receive Date: 20110316
  Receipt Date: 20110223
  Transmission Date: 20110831
  Serious: Yes (Other)
  Sender: FDA-Public Use
  Company Number: 2128643-2011-00012

PATIENT
  Sex: Female

DRUGS (1)
  1. ALCOHOL PREP PADS [Suspect]
     Indication: THERAPEUTIC SKIN CARE TOPICAL

REACTIONS (3)
  - PYREXIA [None]
  - FATIGUE [None]
  - PRODUCT QUALITY ISSUE [None]
